FAERS Safety Report 10175702 (Version 1)
Quarter: 2014Q2

REPORT INFORMATION
  Report Type: Spontaneous
  Country: US (occurrence: US)
  Receive Date: 20140516
  Receipt Date: 20140516
  Transmission Date: 20141212
  Serious: No
  Sender: FDA-Public Use
  Company Number: US-JNJFOC-20140504039

PATIENT
  Sex: Male

DRUGS (3)
  1. FENTANYL [Suspect]
     Indication: PAIN IN EXTREMITY
     Route: 062
     Dates: end: 2013
  2. LYRICA [Concomitant]
     Indication: NERVOUSNESS
     Route: 048
     Dates: start: 201209
  3. FENTORA [Concomitant]
     Indication: BREAKTHROUGH PAIN
     Route: 065
     Dates: start: 2013

REACTIONS (2)
  - Drug dose omission [Unknown]
  - Product adhesion issue [Unknown]
